FAERS Safety Report 9128645 (Version 1)
Quarter: 2013Q1

REPORT INFORMATION
  Report Type: Spontaneous
  Country: US (occurrence: US)
  Receive Date: 20130228
  Receipt Date: 20130228
  Transmission Date: 20140127
  Serious: Yes (Other)
  Sender: FDA-Public Use
  Company Number: US-ELI_LILLY_AND_COMPANY-US201302005001

PATIENT
  Sex: Female

DRUGS (3)
  1. CYMBALTA [Suspect]
     Dosage: 60 MG, UNK
  2. CYMBALTA [Suspect]
     Dosage: 90 MG, UNK
  3. CYMBALTA [Suspect]
     Dosage: 60 MG, UNK

REACTIONS (12)
  - Syncope [Unknown]
  - Concussion [Unknown]
  - Influenza like illness [Unknown]
  - Weight increased [Unknown]
  - Pain [Unknown]
  - Dry mouth [Unknown]
  - Dry eye [Unknown]
  - Tooth loss [Unknown]
  - Dry skin [Unknown]
  - Dizziness [Unknown]
  - Fatigue [Unknown]
  - Drug withdrawal syndrome [Unknown]
